FAERS Safety Report 7740769-1 (Version None)
Quarter: 2011Q3

REPORT INFORMATION
  Report Type: 
  Country: None (occurrence: None)
  Receive Date: 20110909
  Receipt Date: 20110901
  Transmission Date: 20111222
  Serious: Yes (Hospitalization)
  Sender: FDA-Public Use
  Company Number: JP-NAPPMUNDI-MAG-2011-0001544

PATIENT
  Sex: Male

DRUGS (24)
  1. CISPLATIN [Suspect]
     Indication: METASTASES TO BONE
     Dosage: UNK
     Route: 065
     Dates: start: 20110202, end: 20110202
  2. PANVITAN                           /00466101/ [Concomitant]
     Indication: LUNG NEOPLASM MALIGNANT
     Dosage: UNK
     Route: 048
     Dates: start: 20101230
  3. ARGAMATE [Concomitant]
     Dosage: UNK
     Route: 048
     Dates: start: 20110127
  4. OXYCODONE HCL [Suspect]
     Dosage: 20 MG, DAILY
     Route: 048
     Dates: start: 20110314
  5. ONEALFA [Concomitant]
     Indication: PROPHYLAXIS
     Dosage: UNK
     Route: 048
     Dates: start: 20110105
  6. SANMEL [Concomitant]
     Indication: PROPHYLAXIS
     Dosage: UNK
     Route: 048
     Dates: start: 20110113
  7. ZOMETA [Concomitant]
     Indication: METASTASES TO BONE
  8. LANSOPRAZOLE [Concomitant]
     Indication: PROPHYLAXIS
     Dosage: UNK
     Route: 048
  9. VOLTAREN [Concomitant]
     Indication: CANCER PAIN
     Dosage: UNK
     Route: 065
     Dates: start: 20101221, end: 20110119
  10. SPIRIVA [Concomitant]
     Dosage: UNK
     Route: 065
  11. ZOMETA [Concomitant]
     Indication: LUNG NEOPLASM MALIGNANT
     Dosage: UNK
     Route: 065
     Dates: start: 20110124, end: 20110124
  12. DEXAMETHASONE SODIUM PHOSPHATE [Concomitant]
     Indication: PROPHYLAXIS
     Dosage: UNK
     Route: 065
     Dates: start: 20110202, end: 20110202
  13. LOXONIN [Concomitant]
     Indication: CANCER PAIN
     Dosage: UNK
     Route: 065
     Dates: start: 20101221, end: 20110225
  14. MUCOSTA [Concomitant]
     Indication: PROPHYLAXIS
     Dosage: UNK
     Route: 048
  15. ACETAMINOPHEN [Concomitant]
     Indication: CANCER PAIN
     Dosage: UNK
     Route: 048
     Dates: start: 20101223, end: 20110210
  16. NAIXAN                             /00256202/ [Concomitant]
     Indication: CANCER PAIN
     Dosage: UNK
     Route: 048
     Dates: start: 20110225
  17. PANVITAN                           /00466101/ [Concomitant]
     Indication: METASTASES TO BONE
  18. DEPAS [Concomitant]
     Dosage: UNK
     Route: 048
     Dates: start: 20110126
  19. OXYCODONE HCL [Suspect]
     Indication: CANCER PAIN
     Dosage: 40 MG, DAILY
     Route: 048
     Dates: start: 20110115, end: 20110302
  20. OXYCODONE HCL [Suspect]
     Dosage: 30 MG, DAILY
     Route: 048
     Dates: start: 20110303, end: 20110313
  21. ALIMTA [Suspect]
     Indication: METASTASES TO BONE
     Dosage: UNK
     Route: 065
     Dates: start: 20110202, end: 20110202
  22. MAGMITT [Concomitant]
     Indication: PROPHYLAXIS
     Dosage: UNK
     Route: 048
     Dates: start: 20101230
  23. OXYCODONE HCL [Suspect]
     Indication: CANCER PAIN
     Dosage: 2.5 MG, DAILY
     Route: 048
     Dates: start: 20101227
  24. GRANISETRON                        /01178102/ [Concomitant]
     Indication: PROPHYLAXIS
     Dosage: UNK
     Route: 065
     Dates: start: 20110202, end: 20110202

REACTIONS (1)
  - NEUTROPENIA [None]
